FAERS Safety Report 9775908 (Version 2)
Quarter: 2013Q4

REPORT INFORMATION
  Report Type: Spontaneous
  Country: IR (occurrence: IR)
  Receive Date: 20131220
  Receipt Date: 20131226
  Transmission Date: 20140711
  Serious: Yes (Hospitalization)
  Sender: FDA-Public Use
  Company Number: IR-ABBVIE-13P-080-1181929-00

PATIENT
  Sex: 0

DRUGS (1)
  1. VALPROIC ACID [Suspect]
     Indication: EPILEPSY
     Route: 048

REACTIONS (2)
  - Dermatitis exfoliative [Unknown]
  - Rash maculo-papular [Unknown]
